FAERS Safety Report 22622549 (Version 2)
Quarter: 2023Q2

REPORT INFORMATION
  Report Type: Spontaneous
  Country: US (occurrence: US)
  Receive Date: 20230621
  Receipt Date: 20230628
  Transmission Date: 20230721
  Serious: No
  Sender: FDA-Public Use
  Company Number: US-JNJFOC-20230608932

PATIENT
  Age: 73 Year
  Sex: Female

DRUGS (2)
  1. WOMENS ROGAINE UNSCENTED [Suspect]
     Active Substance: MINOXIDIL
     Indication: Alopecia
     Dosage: HALF A CAPFUL
     Route: 065
     Dates: start: 202305
  2. VIVISCAL [DL- LACTIC ACID;PANTHENOL;SILICON DIOXIDE] [Concomitant]
     Indication: Product used for unknown indication
     Route: 065
     Dates: end: 20230602

REACTIONS (3)
  - Dysgeusia [Not Recovered/Not Resolved]
  - Alopecia [Not Recovered/Not Resolved]
  - Inappropriate schedule of product administration [Unknown]

NARRATIVE: CASE EVENT DATE: 20230501
